FAERS Safety Report 5380831-4 (Version None)
Quarter: 2007Q3

REPORT INFORMATION
  Report Type: 
  Country: None (occurrence: None)
  Receive Date: 20070706
  Receipt Date: 20070629
  Transmission Date: 20080115
  Serious: Yes (Death, Hospitalization, Other)
  Sender: FDA-Public Use
  Company Number: US-PURDUE-USA_2007_0026648

PATIENT
  Age: 16 Year
  Sex: Female
  Weight: 63 kg

DRUGS (3)
  1. OXYCONTIN [Suspect]
     Indication: DRUG ABUSER
     Dosage: 80 MG, SEE TEXT
     Route: 065
     Dates: start: 20070227
  2. PAPAVERINE [Suspect]
     Indication: DRUG USE FOR UNKNOWN INDICATION
  3. PHENYTOIN [Suspect]
     Indication: DRUG USE FOR UNKNOWN INDICATION

REACTIONS (7)
  - ACCIDENTAL OVERDOSE [None]
  - CARDIAC ARREST [None]
  - DRUG ABUSER [None]
  - LOSS OF CONSCIOUSNESS [None]
  - LUNG DISORDER [None]
  - MALAISE [None]
  - UNRESPONSIVE TO STIMULI [None]
